FAERS Safety Report 8303667-0 (Version None)
Quarter: 2012Q2

REPORT INFORMATION
  Report Type: 
  Country: None (occurrence: None)
  Receive Date: 20120423
  Receipt Date: 20120410
  Transmission Date: 20120825
  Serious: Yes (Life-Threatening, Hospitalization, Other)
  Sender: FDA-Public Use
  Company Number: RS-PFIZER INC-2011314784

PATIENT
  Age: 56 Year
  Sex: Male
  Weight: 83 kg

DRUGS (10)
  1. RAPAMUNE [Suspect]
     Indication: PROPHYLAXIS AGAINST TRANSPLANT REJECTION
     Dosage: 1 MG, 1X/DAY
     Route: 048
     Dates: start: 20091120, end: 20110501
  2. RAPAMUNE [Suspect]
     Dosage: 1 MG 1+0+0 (EVERY THIRD DAY 1/2 PILL)
  3. PREDNISONE [Concomitant]
     Indication: PROPHYLAXIS AGAINST TRANSPLANT REJECTION
     Dosage: 5 MG, 1X/DAY
     Route: 048
  4. IBUPROFEN [Concomitant]
     Indication: BACK PAIN
     Dosage: 200 MG, EVERY 8 HOURS
  5. PROPRANOLOL [Concomitant]
     Indication: PORTAL HYPERTENSION
     Dosage: 40 MG, 2X/DAY
     Route: 048
  6. PROPRANOLOL [Concomitant]
     Indication: HYPERSPLENISM
     Dosage: 40 MG 1/4 + 1/4 + 0
  7. ANDAXIN [Concomitant]
     Dosage: 200 MG, 1X/DAY
  8. URSO FALK [Concomitant]
     Dosage: 250 MG, 3X/DAY
  9. FUROSEMIDE [Concomitant]
     Indication: OEDEMA
     Dosage: UNK
  10. MIDAZOLAM [Suspect]
     Dosage: 15 MG 0+0+2

REACTIONS (11)
  - DYSPHAGIA [None]
  - INSOMNIA [None]
  - BACK PAIN [None]
  - GENERAL PHYSICAL HEALTH DETERIORATION [None]
  - CARDIO-RESPIRATORY ARREST [None]
  - PSYCHOTIC DISORDER [None]
  - SUICIDAL IDEATION [None]
  - SCHIZOPHRENIA [None]
  - PYREXIA [None]
  - OROPHARYNGEAL PAIN [None]
  - WEIGHT DECREASED [None]
